FAERS Safety Report 9338742 (Version 1)
Quarter: 2013Q2

REPORT INFORMATION
  Report Type: Spontaneous
  Country: AU (occurrence: AU)
  Receive Date: 20130610
  Receipt Date: 20130610
  Transmission Date: 20140414
  Serious: Yes (Other)
  Sender: FDA-Public Use
  Company Number: AU-PFIZER INC-2013172638

PATIENT
  Age: 50 Year
  Sex: Female

DRUGS (6)
  1. ATENOLOL [Suspect]
     Indication: HYPERTENSION
     Dosage: 50 MG, UNK
     Route: 065
     Dates: start: 2008
  2. LIPITOR [Suspect]
     Dosage: 20 MG, 1X/DAY
     Route: 065
  3. METFORMIN HYDROCHLORIDE\VILDAGLIPTIN [Suspect]
     Dosage: 1000/50 MG, 1 DF DAILY
     Route: 048
     Dates: start: 20130129, end: 201302
  4. EXFORGE [Suspect]
     Dosage: 10/160MG 1 DF
     Route: 065
  5. JANUMET [Suspect]
     Dosage: 1000/50, UNK
     Route: 065
  6. NORVASC [Concomitant]
     Dosage: UNK
     Route: 065

REACTIONS (2)
  - Renal failure acute [Not Recovered/Not Resolved]
  - Blood creatinine increased [Not Recovered/Not Resolved]
